FAERS Safety Report 13734884 (Version 1)
Quarter: 2017Q3

REPORT INFORMATION
  Report Type: Spontaneous
  Country: ES (occurrence: ES)
  Receive Date: 20170710
  Receipt Date: 20170710
  Transmission Date: 20171127
  Serious: Yes (Other)
  Sender: FDA-Public Use
  Company Number: ES-MACLEODS PHARMACEUTICALS US LTD-MAC2017005308

PATIENT

DRUGS (10)
  1. OLANZAPINE. [Suspect]
     Active Substance: OLANZAPINE
     Indication: AUTISM SPECTRUM DISORDER
     Dosage: 10 MG, QD (LOW DOSE NEUROLEPTICS)
     Route: 065
  2. MIRTAZAPINE. [Suspect]
     Active Substance: MIRTAZAPINE
     Indication: AUTISM SPECTRUM DISORDER
     Dosage: 60 MG, QD (ANTIDEPRESSANT)
     Route: 065
  3. CARBAMAZEPINE. [Concomitant]
     Active Substance: CARBAMAZEPINE
     Dosage: 1200 MG, QD
     Route: 065
  4. CARBAMAZEPINE. [Concomitant]
     Active Substance: CARBAMAZEPINE
     Indication: PRODUCT USED FOR UNKNOWN INDICATION
     Dosage: UNK
     Route: 065
  5. OLANZAPINE. [Suspect]
     Active Substance: OLANZAPINE
     Dosage: 5 MG, QD
     Route: 065
  6. QUETIAPINE. [Suspect]
     Active Substance: QUETIAPINE
     Indication: AUTISM SPECTRUM DISORDER
     Dosage: 50 MG, QD (LOW DOSE NEUROLEPTICS)
     Route: 065
  7. RISPERIDONE. [Suspect]
     Active Substance: RISPERIDONE
     Indication: AUTISM SPECTRUM DISORDER
     Dosage: 3 MG, QD (LOW DOSE NEUROLEPTIC)
     Route: 065
  8. ESCITALOPRAM OXALATE. [Suspect]
     Active Substance: ESCITALOPRAM OXALATE
     Indication: AUTISM SPECTRUM DISORDER
     Dosage: UNK (ANIDEPRESSANT)
     Route: 065
  9. FLUVOXAMINE [Suspect]
     Active Substance: FLUVOXAMINE
     Indication: AUTISM SPECTRUM DISORDER
     Dosage: UNK(ANTIDEPRESSANT)
     Route: 065
  10. OLANZAPINE. [Suspect]
     Active Substance: OLANZAPINE
     Dosage: 15 MG, QD
     Route: 065

REACTIONS (2)
  - Drug ineffective [Recovering/Resolving]
  - Hepatic enzyme increased [Recovering/Resolving]
